FAERS Safety Report 23670369 (Version 1)
Quarter: 2024Q1

REPORT INFORMATION
  Report Type: Spontaneous
  Country: GB (occurrence: GB)
  Receive Date: 20240325
  Receipt Date: 20240325
  Transmission Date: 20240410
  Serious: Yes (Other)
  Sender: FDA-Public Use
  Company Number: GB-BIOGEN-2024BI01256888

PATIENT
  Age: 30 Year
  Sex: Female

DRUGS (1)
  1. PLEGRIDY [Suspect]
     Active Substance: PEGINTERFERON BETA-1A
     Indication: Multiple sclerosis
     Route: 050

REACTIONS (7)
  - Meniscus injury [Unknown]
  - Knee deformity [Unknown]
  - Multiple sclerosis relapse [Unknown]
  - Accident [Recovered/Resolved]
  - Joint injury [Unknown]
  - Joint dislocation [Unknown]
  - Arthritis [Unknown]

NARRATIVE: CASE EVENT DATE: 20140101
